FAERS Safety Report 5470869-0 (Version None)
Quarter: 2007Q3

REPORT INFORMATION
  Report Type: 
  Country: None (occurrence: None)
  Receive Date: 20070928
  Receipt Date: 20070926
  Transmission Date: 20080115
  Serious: Yes (Other)
  Sender: FDA-Public Use
  Company Number: A0681783A

PATIENT
  Sex: Female

DRUGS (1)
  1. ALLI [Suspect]
     Indication: WEIGHT LOSS DIET
     Route: 048

REACTIONS (6)
  - ANKLE FRACTURE [None]
  - APATHY [None]
  - FATIGUE [None]
  - JOINT SPRAIN [None]
  - POSTMENOPAUSAL HAEMORRHAGE [None]
  - WEIGHT INCREASED [None]
